FAERS Safety Report 15902997 (Version 3)
Quarter: 2019Q2

REPORT INFORMATION
  Report Type: Spontaneous
  Country: US (occurrence: US)
  Receive Date: 20190202
  Receipt Date: 20190405
  Transmission Date: 20190711
  Serious: No
  Sender: FDA-Public Use
  Company Number: US-HETERO CORPORATE-HET2019US00088

PATIENT
  Sex: Male

DRUGS (1)
  1. SILDENAFIL. [Suspect]
     Active Substance: SILDENAFIL
     Indication: ERECTILE DYSFUNCTION
     Dosage: 20 MG, QD(BUT HE TAKES ONCE IN A WEEK)
     Route: 065
     Dates: start: 20181220, end: 20190120

REACTIONS (1)
  - Drug ineffective [Unknown]
